FAERS Safety Report 5104970-8 (Version None)
Quarter: 2006Q3

REPORT INFORMATION
  Report Type: 
  Country: None (occurrence: None)
  Receive Date: 20060911
  Receipt Date: 20060831
  Transmission Date: 20061208
  Serious: Yes (Hospitalization, Congenital Anomaly, Other)
  Sender: FDA-Public Use
  Company Number: 2006077550

PATIENT
  Sex: Female
  Weight: 68.0396 kg

DRUGS (12)
  1. XALATAN [Suspect]
     Indication: GLAUCOMA
     Dosage: 3 MCG (1.5 MCG,1 D)
     Dates: start: 19980101
  2. LASIX [Suspect]
     Indication: JOINT SWELLING
     Dosage: 2 IN 1 D
  3. ESTRADIOL INJ [Concomitant]
  4. INDERAL [Concomitant]
  5. TIMOPTIC [Concomitant]
  6. ZANTAC [Concomitant]
  7. RIBELFAN (AMINOPHENAZONE, NOSCAPINE, QUININE, SULFAMETHOXYPYRIDAZINE) [Concomitant]
  8. VALIUM [Concomitant]
  9. VALSARTAN [Concomitant]
  10. DARVOCET [Concomitant]
  11. CORTISONE [Concomitant]
  12. KLOR-CON [Concomitant]

REACTIONS (10)
  - ARTHRALGIA [None]
  - CARPAL TUNNEL SYNDROME [None]
  - FLUID RETENTION [None]
  - GASTROOESOPHAGEAL REFLUX DISEASE [None]
  - HIP ARTHROPLASTY [None]
  - HYPERTENSION [None]
  - INTRAOCULAR PRESSURE INCREASED [None]
  - JOINT INJURY [None]
  - MUSCLE SPASMS [None]
  - PHARMACEUTICAL PRODUCT COMPLAINT [None]
